FAERS Safety Report 18897944 (Version 1)
Quarter: 2021Q1

REPORT INFORMATION
  Report Type: Spontaneous
  Country: US (occurrence: US)
  Receive Date: 20210216
  Receipt Date: 20210216
  Transmission Date: 20210420
  Serious: No
  Sender: FDA-Public Use
  Company Number: US-CELLTRION INC.-2021US000253

PATIENT

DRUGS (2)
  1. TRUXIMA [Suspect]
     Active Substance: RITUXIMAB-ABBS
     Indication: MANTLE CELL LYMPHOMA
     Dosage: 650 MG (375/M2) FREQUENCY Q WEEK X4 THEN Q 4 WEEKS
     Route: 042
     Dates: start: 20200108
  2. TRUXIMA [Suspect]
     Active Substance: RITUXIMAB-ABBS
     Dosage: 650 MG (375/M2) FREQUENCY Q WEEK X4 THEN Q 4 WEEKS
     Route: 042
     Dates: start: 20200108

REACTIONS (1)
  - Off label use [Unknown]
